FAERS Safety Report 4353056-9 (Version None)
Quarter: 2004Q2

REPORT INFORMATION
  Report Type: 
  Country: None (occurrence: None)
  Receive Date: 20040429
  Receipt Date: 20040420
  Transmission Date: 20050107
  Serious: Yes (Other)
  Sender: FDA-Public Use
  Company Number: FR-JNJFOC-20040306047

PATIENT
  Age: 63 Year
  Sex: Female
  Weight: 68 kg

DRUGS (7)
  1. REMICADE [Suspect]
     Indication: ARTHRITIS
     Dosage: INTRAVENOUS
     Route: 042
     Dates: start: 20030601, end: 20040106
  2. REMICADE [Suspect]
     Indication: RHEUMATOID ARTHRITIS
     Dosage: INTRAVENOUS
     Route: 042
     Dates: start: 20030601, end: 20040106
  3. PREDNISONE TAB [Concomitant]
  4. METHOTREXATE [Concomitant]
  5. FOLIC ACID [Concomitant]
  6. LEXOMIL (BROMAZEPAM) [Concomitant]
  7. IMOVANE (ZOPICLONE) [Concomitant]

REACTIONS (4)
  - HAEMATOCHEZIA [None]
  - HAEMORRHOIDS [None]
  - RECTAL CANCER [None]
  - RECTAL POLYP [None]
